FAERS Safety Report 16425177 (Version 1)
Quarter: 2019Q2

REPORT INFORMATION
  Report Type: Spontaneous
  Country: US (occurrence: US)
  Receive Date: 20190506
  Receipt Date: 20190506
  Transmission Date: 20190711
  Serious: No
  Sender: FDA-Public Use
  Company Number: None

PATIENT
  Age: 21 Month
  Sex: Male

DRUGS (1)
  1. NORDITROPIN [Suspect]
     Active Substance: SOMATROPIN
     Dates: start: 201805

REACTIONS (3)
  - Injection site bruising [None]
  - Product substitution issue [None]
  - Device difficult to use [None]

NARRATIVE: CASE EVENT DATE: 20190422
